FAERS Safety Report 9269129 (Version 1)
Quarter: 2013Q2

REPORT INFORMATION
  Report Type: Spontaneous
  Country: GB (occurrence: GB)
  Receive Date: 20130503
  Receipt Date: 20130503
  Transmission Date: 20140414
  Serious: Yes (Hospitalization)
  Sender: FDA-Public Use
  Company Number: GB-ABBOTT-13X-167-1084055-00

PATIENT
  Age: 37 Year
  Sex: Female

DRUGS (1)
  1. EPILIM CHRONOSPHERE [Suspect]
     Indication: EPILEPSY
     Route: 048
     Dates: start: 1933

REACTIONS (5)
  - Pharyngeal ulceration [Unknown]
  - Infection [Unknown]
  - Mouth ulceration [Unknown]
  - Aphagia [Unknown]
  - Dysphagia [Unknown]
